FAERS Safety Report 8536416-1 (Version None)
Quarter: 2012Q3

REPORT INFORMATION
  Report Type: 
  Country: None (occurrence: None)
  Receive Date: 20120725
  Receipt Date: 20120711
  Transmission Date: 20120928
  Serious: Yes (Disabling)
  Sender: FDA-Public Use
  Company Number: FR-INCYTE CORPORATION-2012IN000698

PATIENT
  Sex: Female

DRUGS (5)
  1. NEO-MERCAZOLE TAB [Concomitant]
  2. TRIMIPRAMINE MALEATE [Concomitant]
  3. INCB018424 [Suspect]
     Indication: MYELOFIBROSIS
     Dosage: 15 MG, BID
     Route: 048
     Dates: start: 20111222
  4. INCB018424 [Suspect]
     Dosage: 10-15 MG PER DAY
     Dates: start: 20120125, end: 20120710
  5. EPREX [Concomitant]
     Dosage: UNK
     Dates: start: 20120306

REACTIONS (2)
  - AXONAL NEUROPATHY [None]
  - DYSAESTHESIA [None]
